FAERS Safety Report 4501577-8 (Version None)
Quarter: 2004Q3

REPORT INFORMATION
  Report Type: 
  Country: None (occurrence: None)
  Receive Date: 20040928
  Receipt Date: 20040823
  Transmission Date: 20050211
  Serious: No
  Sender: FDA-Public Use
  Company Number: 04P-163-0271271-00

PATIENT
  Age: 70 Year
  Sex: Male
  Weight: 104.3273 kg

DRUGS (7)
  1. HUMIRA [Suspect]
     Indication: RHEUMATOID ARTHRITIS
     Dosage: 40 MG, 1 IN 1 WK, SUBCUTANEOUS
     Route: 058
     Dates: start: 20030801
  2. PREDNISONE [Concomitant]
  3. AMLODIPINE BESYLATE [Concomitant]
  4. FUROSEMIDE [Concomitant]
  5. FOLIC ACID [Concomitant]
  6. MULTIVITAMIN [Concomitant]
  7. CALCIUM GLUCONATE [Concomitant]

REACTIONS (3)
  - EYE SWELLING [None]
  - PYREXIA [None]
  - SWELLING FACE [None]
